FAERS Safety Report 15401947 (Version 5)
Quarter: 2019Q1

REPORT INFORMATION
  Report Type: Report from Study
  Country: US (occurrence: US)
  Receive Date: 20180919
  Receipt Date: 20190320
  Transmission Date: 20190417
  Serious: No
  Sender: FDA-Public Use
  Company Number: US-TAKEDA-2018TUS027488

PATIENT

DRUGS (1)
  1. BRIGATINIB [Suspect]
     Active Substance: BRIGATINIB
     Indication: NON-SMALL CELL LUNG CANCER METASTATIC
     Dosage: UNK
     Route: 065

REACTIONS (9)
  - Oropharyngeal pain [Unknown]
  - Sleep disorder [Recovered/Resolved]
  - Hypoaesthesia [Recovered/Resolved]
  - Cough [Unknown]
  - Somnolence [Unknown]
  - Paraesthesia [Recovered/Resolved]
  - Fatigue [Unknown]
  - Blood cholesterol increased [Unknown]
  - Dyspnoea [Recovering/Resolving]
